FAERS Safety Report 6427389-6 (Version None)
Quarter: 2009Q4

REPORT INFORMATION
  Report Type: 
  Country: None (occurrence: None)
  Receive Date: 20091030
  Receipt Date: 20091016
  Transmission Date: 20100525
  Serious: Yes (Death, Hospitalization)
  Sender: FDA-Public Use
  Company Number: 2009AC000057

PATIENT
  Age: 89 Year
  Sex: Male

DRUGS (10)
  1. DIGOXIN [Suspect]
     Dosage: 0.25 MG;QD;PO
     Route: 048
  2. LASIX [Concomitant]
  3. SODIUM BICARBONATE IN PLASTIC CONTAINER [Concomitant]
  4. LISINOPRIL [Concomitant]
  5. DUONEB [Concomitant]
  6. SILVADENE [Concomitant]
  7. AUGMENTIN [Concomitant]
  8. METOLAZONE [Concomitant]
  9. ASCENSIA [Concomitant]
  10. FELODIPINE [Concomitant]

REACTIONS (17)
  - ANAEMIA [None]
  - ASTHENIA [None]
  - BLOOD POTASSIUM INCREASED [None]
  - CARDIOACTIVE DRUG LEVEL INCREASED [None]
  - DEHYDRATION [None]
  - DIARRHOEA [None]
  - ECONOMIC PROBLEM [None]
  - INFECTED SKIN ULCER [None]
  - MALNUTRITION [None]
  - MULTIPLE INJURIES [None]
  - PLEURAL EFFUSION [None]
  - PNEUMONIA [None]
  - PULMONARY OEDEMA [None]
  - RENAL FAILURE ACUTE [None]
  - RENAL FAILURE CHRONIC [None]
  - RESPIRATORY FAILURE [None]
  - SKIN ODOUR ABNORMAL [None]
